FAERS Safety Report 9113726 (Version 1)
Quarter: 2013Q1

REPORT INFORMATION
  Report Type: Spontaneous
  Country: US (occurrence: US)
  Receive Date: 20130129
  Receipt Date: 20130129
  Transmission Date: 20140127
  Serious: No
  Sender: FDA-Public Use
  Company Number: US-009507513-1301USA012387

PATIENT
  Sex: Male

DRUGS (2)
  1. COSOPT [Suspect]
     Indication: MACULAR HOLE
     Dosage: 2/0.5 %, 1 DROP IN EACH EYE, TWICE A DAY
     Route: 047
     Dates: start: 201209
  2. COSOPT [Suspect]
     Indication: INTRAOCULAR PRESSURE TEST

REACTIONS (3)
  - Drug dose omission [Unknown]
  - Product quality issue [Unknown]
  - No adverse event [Unknown]
